FAERS Safety Report 8464366-8 (Version None)
Quarter: 2012Q2

REPORT INFORMATION
  Report Type: 
  Country: None (occurrence: None)
  Receive Date: 20120626
  Receipt Date: 20120619
  Transmission Date: 20120825
  Serious: Yes (Other)
  Sender: FDA-Public Use
  Company Number: US-AMGEN-USASP2012038699

PATIENT
  Age: 50 Year
  Sex: Female

DRUGS (1)
  1. PROLIA [Suspect]
     Indication: PRODUCT USED FOR UNKNOWN INDICATION

REACTIONS (7)
  - ABORTION SPONTANEOUS [None]
  - HYPERSENSITIVITY [None]
  - PRURITUS [None]
  - INJECTION RELATED REACTION [None]
  - SKIN WRINKLING [None]
  - HYSTERECTOMY [None]
  - EXCORIATION [None]
